FAERS Safety Report 5167257-3 (Version None)
Quarter: 2006Q4

REPORT INFORMATION
  Report Type: 
  Country: None (occurrence: None)
  Receive Date: 20061207
  Receipt Date: 20040913
  Transmission Date: 20070319
  Serious: Yes (Life-Threatening)
  Sender: FDA-Public Use
  Company Number: IT-BOEHRINGER INGELHEIM PHARMACEUTICALS, INC.-2004-IT-00145PF

PATIENT
  Age: 84 Year
  Sex: Female

DRUGS (1)
  1. SPIRIVA [Suspect]
     Indication: DYSPNOEA
     Route: 055
     Dates: start: 20040904, end: 20040906

REACTIONS (3)
  - BRONCHOSPASM [None]
  - DYSPNOEA [None]
  - TACHYCARDIA [None]
